FAERS Safety Report 9338601 (Version 1)
Quarter: 2013Q2

REPORT INFORMATION
  Report Type: Spontaneous
  Country: US (occurrence: None)
  Receive Date: 20130605
  Receipt Date: 20130605
  Transmission Date: 20140414
  Serious: No
  Sender: FDA-Public Use
  Company Number: None

PATIENT
  Age: 85 Year
  Sex: Female

DRUGS (9)
  1. FORTEO [Suspect]
     Indication: OSTEOPOROSIS
     Route: 058
     Dates: start: 20130418
  2. EVISTA [Concomitant]
  3. RESTASIS [Concomitant]
  4. FLONASE [Concomitant]
  5. LISINOPRIL [Concomitant]
  6. METOPROLOL [Concomitant]
  7. POTASSIUM [Concomitant]
  8. ALBUTEROL [Concomitant]
  9. OMEPRAZOLE [Concomitant]

REACTIONS (6)
  - Headache [None]
  - Dizziness [None]
  - Injection site erythema [None]
  - Nausea [None]
  - Diarrhoea [None]
  - Unevaluable event [None]
